FAERS Safety Report 4450871-8 (Version None)
Quarter: 2004Q3

REPORT INFORMATION
  Report Type: 
  Country: None (occurrence: None)
  Receive Date: 20040916
  Receipt Date: 20040324
  Transmission Date: 20050211
  Serious: Yes (Other)
  Sender: FDA-Public Use
  Company Number: US-BRISTOL-MYERS SQUIBB COMPANY-11534237

PATIENT
  Sex: Male

DRUGS (27)
  1. STADOL [Suspect]
     Route: 045
  2. STADOL [Suspect]
  3. PRILOSEC [Concomitant]
  4. METHOCARBAMOL [Concomitant]
  5. OXYCODONE HCL + ACETAMINOPHEN [Concomitant]
  6. MEPERGAN FORTIS [Concomitant]
  7. LORTAB [Concomitant]
  8. ELAVIL [Concomitant]
  9. AMBIEN [Concomitant]
  10. VERAPAMIL HCL [Concomitant]
  11. XANAX [Concomitant]
  12. TYLOX [Concomitant]
  13. HYDROCODONE + ACETAMINOPHEN [Concomitant]
  14. CIPRO [Concomitant]
  15. LORCET-HD [Concomitant]
  16. OXYBUTYNIN CHLORIDE [Concomitant]
  17. PROVENTIL [Concomitant]
  18. ALBUTEROL [Concomitant]
  19. TRIMOX [Concomitant]
  20. ENTEX CAP [Concomitant]
  21. RELAFEN [Concomitant]
  22. METHOCARBAMOL [Concomitant]
  23. DICYCLOMINE [Concomitant]
  24. CECLOR [Concomitant]
  25. RESTORIL [Concomitant]
  26. CEPHALEXIN [Concomitant]
  27. ENTEX CAP [Concomitant]

REACTIONS (1)
  - DEPENDENCE [None]
